FAERS Safety Report 7027120-X (Version None)
Quarter: 2010Q3

REPORT INFORMATION
  Report Type: 
  Country: None (occurrence: None)
  Receive Date: 20100929
  Receipt Date: 20100913
  Transmission Date: 20110219
  Serious: Yes (Hospitalization)
  Sender: FDA-Public Use
  Company Number: 2010MA002594

PATIENT
  Age: 54 Year
  Sex: Female

DRUGS (5)
  1. NIFEDIPINE [Suspect]
     Indication: HYPERTENSION
     Dates: start: 20060201
  2. HAKUMOUNTOU [Concomitant]
  3. FLUTICASONE PROPIONATE [Concomitant]
  4. BAKUMONDOTO [Concomitant]
  5. ETIZOLAM [Concomitant]

REACTIONS (6)
  - EOSINOPHILIC PNEUMONIA [None]
  - INTERSTITIAL LUNG DISEASE [None]
  - LYMPHOCYTE STIMULATION TEST POSITIVE [None]
  - ORGANISING PNEUMONIA [None]
  - PHARYNGEAL OEDEMA [None]
  - TACHYCARDIA [None]
